FAERS Safety Report 8174769-7 (Version None)
Quarter: 2012Q1

REPORT INFORMATION
  Report Type: 
  Country: None (occurrence: None)
  Receive Date: 20120229
  Receipt Date: 20120217
  Transmission Date: 20120608
  Serious: Yes (Hospitalization)
  Sender: FDA-Public Use
  Company Number: DE-PFIZER INC-2012014901

PATIENT
  Age: 75 Year
  Sex: Female
  Weight: 48 kg

DRUGS (2)
  1. TORISEL [Suspect]
     Dosage: 20 MG, WEEKLY
     Route: 042
     Dates: start: 20111007, end: 20111103
  2. TORISEL [Suspect]
     Indication: MYELODYSPLASTIC SYNDROME
     Dosage: 25 MG, WEEKLY
     Route: 042
     Dates: start: 20110822

REACTIONS (3)
  - ASTHENIA [None]
  - DECREASED APPETITE [None]
  - FATIGUE [None]
